FAERS Safety Report 4531590-6 (Version None)
Quarter: 2004Q4

REPORT INFORMATION
  Report Type: 
  Country: None (occurrence: None)
  Receive Date: 20041216
  Receipt Date: 20041208
  Transmission Date: 20050328
  Serious: Yes (Death)
  Sender: FDA-Public Use
  Company Number: 163-20785-04100840

PATIENT
  Age: 83 Year
  Sex: Male
  Weight: 72.8023 kg

DRUGS (21)
  1. THALOMID [Suspect]
     Indication: MYELODYSPLASTIC SYNDROME
     Dosage: SEE IMAGE
     Route: 048
     Dates: start: 20040101, end: 20040301
  2. THALOMID [Suspect]
     Indication: MYELODYSPLASTIC SYNDROME
     Dosage: SEE IMAGE
     Route: 048
     Dates: start: 20040701, end: 20040711
  3. THALOMID [Suspect]
     Indication: MYELODYSPLASTIC SYNDROME
     Dosage: SEE IMAGE
     Route: 048
     Dates: start: 20040825, end: 20040912
  4. RBC TRANSFUSIONS (BLOOD TRANSFUSION, AUXILIARY PRODUCTS) [Concomitant]
  5. ISORDIL [Concomitant]
  6. METOPROLOL TARTRATE [Concomitant]
  7. ALBUTEROL [Concomitant]
  8. COMBIVENT [Concomitant]
  9. METFORMIN HCL [Concomitant]
  10. WELCHOL [Concomitant]
  11. ACTOS [Concomitant]
  12. LISINOPRIL [Concomitant]
  13. TYLENOL [Concomitant]
  14. LESCOL [Concomitant]
  15. ZYBAN SR (BUPROPION HYDROCHLORIDE) [Concomitant]
  16. ACETYLSALICYLIC ACID SRT [Concomitant]
  17. GLIPIZIDE ER (GLIPIZIDE) [Concomitant]
  18. METOPROLOL TARTRATE [Concomitant]
  19. PROCRIT (ERYTHROPOIETIN) [Concomitant]
  20. NEULASTA [Concomitant]
  21. PLATELET TRANSFUSIONS (BLOOD TRANSFUSION, AUXILIARY PRODUCTS) [Concomitant]

REACTIONS (13)
  - ACUTE MYELOID LEUKAEMIA [None]
  - ARTHRALGIA [None]
  - BLOOD PRESSURE DIASTOLIC DECREASED [None]
  - BODY TEMPERATURE DECREASED [None]
  - CHROMOSOME ANALYSIS ABNORMAL [None]
  - COLITIS ULCERATIVE [None]
  - DIARRHOEA [None]
  - DIZZINESS POSTURAL [None]
  - DRUG INEFFECTIVE [None]
  - EXERCISE TOLERANCE DECREASED [None]
  - FATIGUE [None]
  - MALIGNANT NEOPLASM PROGRESSION [None]
  - REFUSAL OF TREATMENT BY PATIENT [None]
